FAERS Safety Report 10550538 (Version 3)
Quarter: 2015Q1

REPORT INFORMATION
  Report Type: Report from Study
  Country: US (occurrence: US)
  Receive Date: 20141029
  Receipt Date: 20150211
  Transmission Date: 20150720
  Serious: Yes (Hospitalization, Other)
  Sender: FDA-Public Use
  Company Number: US-AMGEN-USASL2014082386

PATIENT
  Age: 43 Year
  Sex: Female

DRUGS (3)
  1. HUMIRA [Concomitant]
     Active Substance: ADALIMUMAB
     Dosage: UNK
  2. ENBREL [Suspect]
     Active Substance: ETANERCEPT
     Indication: PSORIASIS
  3. ENBREL [Suspect]
     Active Substance: ETANERCEPT
     Indication: PSORIATIC ARTHROPATHY
     Dosage: 50 MG, QWK
     Route: 065
     Dates: start: 2009, end: 20150106

REACTIONS (26)
  - Spinal disorder [Recovered/Resolved]
  - Incision site vesicles [Recovered/Resolved]
  - Incision site swelling [Recovered/Resolved]
  - Pyrexia [Recovered/Resolved]
  - Muscle tightness [Recovered/Resolved]
  - Intervertebral disc displacement [Recovered/Resolved]
  - Incision site erythema [Recovered/Resolved]
  - Dermatitis contact [Recovered/Resolved]
  - Spinal pain [Not Recovered/Not Resolved]
  - Pain in extremity [Not Recovered/Not Resolved]
  - Back pain [Not Recovered/Not Resolved]
  - Hypersensitivity [Recovered/Resolved]
  - Exostosis [Not Recovered/Not Resolved]
  - Musculoskeletal chest pain [Not Recovered/Not Resolved]
  - Nasopharyngitis [Recovered/Resolved]
  - Influenza [Recovered/Resolved]
  - Blister [Recovered/Resolved]
  - Seroma [Recovered/Resolved]
  - Nerve compression [Recovered/Resolved]
  - Oropharyngeal pain [Recovered/Resolved]
  - Arthralgia [Not Recovered/Not Resolved]
  - Pain [Recovered/Resolved]
  - Intervertebral disc degeneration [Not Recovered/Not Resolved]
  - Drug effect incomplete [Unknown]
  - Gait disturbance [Recovered/Resolved]
  - Musculoskeletal pain [Not Recovered/Not Resolved]

NARRATIVE: CASE EVENT DATE: 2014
